FAERS Safety Report 21189402 (Version 1)
Quarter: 2022Q3

REPORT INFORMATION
  Report Type: Spontaneous
  Country: HU (occurrence: HU)
  Receive Date: 20220809
  Receipt Date: 20220809
  Transmission Date: 20221027
  Serious: Yes (Disabling, Other)
  Sender: FDA-Public Use
  Company Number: None

PATIENT
  Age: 51 Year
  Sex: Male
  Weight: 82 kg

DRUGS (7)
  1. PROPRANOLOL HYDROCHLORIDE [Suspect]
     Active Substance: PROPRANOLOL HYDROCHLORIDE
     Indication: Alcohol abuse
     Dosage: UNIT DOSE : 40 MG  , FREQUENCY TIME : 12 HOURS,  DURATION : 1 YEARS
     Dates: start: 2021, end: 20220623
  2. SPIRONOLACTONE [Concomitant]
     Active Substance: SPIRONOLACTONE
     Indication: Product used for unknown indication
     Dosage: UNIT DOSE : 25 MG   ,  DURATION : 1 YEARS
     Dates: start: 2021, end: 20220623
  3. CINOLAZEPAM [Concomitant]
     Active Substance: CINOLAZEPAM
     Indication: Alcohol abuse
     Dates: end: 20220506
  4. POTASSIUM CHLORIDE [Concomitant]
     Active Substance: POTASSIUM CHLORIDE
     Indication: Product used for unknown indication
     Dosage: UNIT DOSE : 600 MG   ,  DURATION : 1 YEARS
     Dates: start: 2021, end: 20220623
  5. FAMOTIDINE [Concomitant]
     Active Substance: FAMOTIDINE
     Indication: Alcohol abuse
     Dosage: UNIT DOSE : 20 MG  ,  DURATION : 1 YEARS
     Dates: start: 2021, end: 20220623
  6. FUROSEMID-CHINOIN [Concomitant]
     Indication: Alcohol abuse
     Dosage: UNIT DOSE : 40 MG   ,  DURATION : 1 YEARS
     Dates: start: 2021, end: 20220623
  7. QUETIAPINE FUMARATE [Concomitant]
     Active Substance: QUETIAPINE FUMARATE
     Indication: Alcohol abuse
     Dosage: UNIT DOSE : 25 MG
     Dates: end: 20220429

REACTIONS (2)
  - Head discomfort [Not Recovered/Not Resolved]
  - Tinnitus [Not Recovered/Not Resolved]
